FAERS Safety Report 5489654-9 (Version None)
Quarter: 2007Q4

REPORT INFORMATION
  Report Type: 
  Country: None (occurrence: None)
  Receive Date: 20071018
  Receipt Date: 20071015
  Transmission Date: 20080405
  Serious: Yes (Life-Threatening, Hospitalization, Disabling)
  Sender: FDA-Public Use
  Company Number: B0483222A

PATIENT
  Age: 79 Year
  Sex: Male
  Weight: 38 kg

DRUGS (15)
  1. ARIXTRA [Suspect]
     Indication: THROMBOSIS PROPHYLAXIS
     Dosage: 2.5MG PER DAY
     Route: 058
     Dates: start: 20070731, end: 20070803
  2. THEO-DUR [Concomitant]
     Dosage: 200MG PER DAY
     Route: 048
     Dates: start: 20070727
  3. ONON [Concomitant]
     Route: 048
     Dates: start: 20070727
  4. MUCOSAL [Concomitant]
     Dosage: 45MG PER DAY
     Route: 048
     Dates: start: 20070727
  5. MUCODYNE [Concomitant]
     Dosage: 1500MG PER DAY
     Route: 048
     Dates: start: 20070727
  6. SPIRIVA [Concomitant]
     Dosage: 18MCG PER DAY
     Route: 055
     Dates: start: 20070727
  7. FLUTIDE [Concomitant]
     Route: 055
     Dates: start: 20070727
  8. MEPTIN AIR [Concomitant]
     Route: 055
     Dates: start: 20070727
  9. VOLTAREN [Concomitant]
     Route: 054
     Dates: start: 20070728
  10. LECICARBON [Concomitant]
     Route: 054
     Dates: start: 20070729, end: 20070729
  11. DORMICUM [Concomitant]
     Dosage: 10MG PER DAY
     Route: 030
     Dates: start: 20070730
  12. FLUMARIN [Concomitant]
     Route: 042
     Dates: start: 20070730
  13. LORCAM [Concomitant]
     Route: 048
     Dates: start: 20070730
  14. MUCOSTA [Concomitant]
     Dosage: 300MG PER DAY
     Route: 048
     Dates: start: 20070730
  15. FLOMOX [Concomitant]
     Dosage: 300MG PER DAY
     Route: 048
     Dates: start: 20070802

REACTIONS (3)
  - MALAISE [None]
  - POST PROCEDURAL HAEMORRHAGE [None]
  - TRAUMATIC HAEMATOMA [None]
